FAERS Safety Report 11369078 (Version 1)
Quarter: 2015Q3

REPORT INFORMATION
  Report Type: Spontaneous
  Country: FR (occurrence: FR)
  Receive Date: 20150812
  Receipt Date: 20150812
  Transmission Date: 20151125
  Serious: Yes (Other)
  Sender: FDA-Public Use
  Company Number: FR-ROCHE-1620285

PATIENT
  Age: 58 Year
  Sex: Female

DRUGS (2)
  1. XOLAIR [Suspect]
     Active Substance: OMALIZUMAB
     Indication: ASTHMA
     Route: 065
     Dates: start: 2014, end: 2014
  2. SOLUPRED (FRANCE) [Suspect]
     Active Substance: PREDNISOLONE
     Indication: ASTHMA
     Route: 065
     Dates: start: 2014

REACTIONS (6)
  - Intentional product misuse [Unknown]
  - Coma [Unknown]
  - Adrenal insufficiency [Unknown]
  - Renal impairment [Unknown]
  - Blood immunoglobulin A increased [Recovered/Resolved]
  - Laryngeal necrosis [Unknown]

NARRATIVE: CASE EVENT DATE: 2014
